FAERS Safety Report 6547353-6 (Version None)
Quarter: 2010Q1

REPORT INFORMATION
  Report Type: 
  Country: None (occurrence: None)
  Receive Date: 20100122
  Receipt Date: 20100112
  Transmission Date: 20100710
  Serious: Yes (Hospitalization)
  Sender: FDA-Public Use
  Company Number: US-WYE-H12604109

PATIENT
  Sex: Male
  Weight: 77.18 kg

DRUGS (2)
  1. PRISTIQ [Suspect]
     Dosage: GIVEN SAMPLES, TOOK 3 OR 4 HALF TABLETS
     Route: 048
  2. WARFARIN [Interacting]
     Dosage: UNKNOWN

REACTIONS (2)
  - DRUG INTERACTION [None]
  - INTERNATIONAL NORMALISED RATIO INCREASED [None]
